FAERS Safety Report 13947533 (Version 1)
Quarter: 2017Q3

REPORT INFORMATION
  Report Type: Spontaneous
  Country: US (occurrence: US)
  Receive Date: 20170908
  Receipt Date: 20170908
  Transmission Date: 20171128
  Serious: Yes (Death, Other)
  Sender: FDA-Public Use
  Company Number: US-ROCHE-1988596

PATIENT
  Age: 82 Year
  Sex: Male
  Weight: 94.5 kg

DRUGS (2)
  1. ACTIVASE [Suspect]
     Active Substance: ALTEPLASE
     Route: 041
     Dates: start: 20170115
  2. ACTIVASE [Suspect]
     Active Substance: ALTEPLASE
     Indication: PRODUCT USED FOR UNKNOWN INDICATION
     Route: 040
     Dates: start: 20170115

REACTIONS (4)
  - Depressed level of consciousness [Unknown]
  - Haemorrhagic transformation stroke [Unknown]
  - Death [Fatal]
  - Speech disorder [Unknown]

NARRATIVE: CASE EVENT DATE: 20170116
